FAERS Safety Report 9243006 (Version 4)
Quarter: 2015Q3

REPORT INFORMATION
  Report Type: Spontaneous
  Country: US (occurrence: US)
  Receive Date: 20130419
  Receipt Date: 20150803
  Transmission Date: 20151125
  Serious: No
  Sender: FDA-Public Use
  Company Number: US-009507513-0412USA00697

PATIENT
  Sex: Male
  Weight: 85.26 kg

DRUGS (2)
  1. PROPECIA [Suspect]
     Active Substance: FINASTERIDE
     Dosage: UNK
     Route: 048
     Dates: end: 201206
  2. PROPECIA [Suspect]
     Active Substance: FINASTERIDE
     Indication: ALOPECIA
     Dosage: 1 MG, QD
     Route: 048
     Dates: start: 2002, end: 20060327

REACTIONS (11)
  - Neck pain [Unknown]
  - Breast tenderness [Unknown]
  - Hypogonadism [Not Recovered/Not Resolved]
  - Face oedema [Not Recovered/Not Resolved]
  - Cognitive disorder [Not Recovered/Not Resolved]
  - Sexual dysfunction [Not Recovered/Not Resolved]
  - Coronary artery disease [Unknown]
  - Erectile dysfunction [Unknown]
  - Spinal disorder [Unknown]
  - Rash papular [Not Recovered/Not Resolved]
  - Lipoma [Unknown]

NARRATIVE: CASE EVENT DATE: 20041205
